FAERS Safety Report 23102167 (Version 2)
Quarter: 2023Q4

REPORT INFORMATION
  Report Type: Spontaneous
  Country: RO (occurrence: RO)
  Receive Date: 20231025
  Receipt Date: 20231211
  Transmission Date: 20240109
  Serious: Yes (Other)
  Sender: FDA-Public Use
  Company Number: RO-ASTELLAS-2023US029258

PATIENT

DRUGS (9)
  1. SOLIFENACIN [Suspect]
     Active Substance: SOLIFENACIN
     Indication: Hypertonic bladder
     Dosage: 10 MG, ONCE DAILY (1 TABLET/DAY)
     Route: 048
     Dates: start: 202110, end: 202112
  2. SOLIFENACIN [Suspect]
     Active Substance: SOLIFENACIN
     Indication: Benign prostatic hyperplasia
  3. TAMSULOSIN [Suspect]
     Active Substance: TAMSULOSIN
     Indication: Benign prostatic hyperplasia
     Dosage: 0.4 MG, ONCE DAILY
     Route: 048
     Dates: start: 202108
  4. DUTASTERIDE [Suspect]
     Active Substance: DUTASTERIDE
     Indication: Benign prostatic hyperplasia
     Dosage: 1 DF, ONCE DAILY, (14 DAYS TREATMENT PERIOD; AUGUST - STOP DUTASTERIDE)
     Route: 048
     Dates: start: 202108, end: 202108
  5. MIRABEGRON [Suspect]
     Active Substance: MIRABEGRON
     Indication: Hypertonic bladder
     Dosage: 50 MG, ONCE DAILY (1 TABLET/DAY, RESTARTED DOSE)
     Route: 048
     Dates: start: 202112, end: 202202
  6. MIRABEGRON [Suspect]
     Active Substance: MIRABEGRON
     Indication: Benign prostatic hyperplasia
     Dosage: 50 MG, EVERY OTHER DAY (1 TABLET EVERY 2 DAYS A MONTH)
     Route: 048
     Dates: start: 202203, end: 202204
  7. MIRABEGRON [Suspect]
     Active Substance: MIRABEGRON
     Dosage: 50 MG, EVERY 3 DAYS (1 TABLET EVERY 3 DAYS A MONTH)
     Route: 048
     Dates: start: 202204
  8. MIRABEGRON [Suspect]
     Active Substance: MIRABEGRON
     Dosage: 50 MG, ONCE DAILY (1 TABLET/DAY, RESTARTED DOSE)
     Route: 048
  9. UNSPECIFIED INGREDIENT [Concomitant]
     Active Substance: UNSPECIFIED INGREDIENT
     Dosage: UNK UNK, UNKNOWN FREQ.
     Route: 048

REACTIONS (4)
  - Erectile dysfunction [Recovered/Resolved]
  - Drug ineffective [Recovering/Resolving]
  - Off label use [Recovering/Resolving]
  - Dry mouth [Not Recovered/Not Resolved]

NARRATIVE: CASE EVENT DATE: 20210801
